FAERS Safety Report 14171585 (Version 1)
Quarter: 2017Q4

REPORT INFORMATION
  Report Type: Spontaneous
  Country: US (occurrence: US)
  Receive Date: 20171108
  Receipt Date: 20171108
  Transmission Date: 20180321
  Serious: No
  Sender: FDA-Public Use
  Company Number: US-SA-2017SA115543

PATIENT
  Sex: Male

DRUGS (2)
  1. TOUJEO [Suspect]
     Active Substance: INSULIN GLARGINE
     Dosage: FREQUENCY: EVERY MORNING. DOSE:25 UNIT(S)
     Route: 051
     Dates: start: 201704
  2. SOLOSTAR [Concomitant]
     Active Substance: DEVICE
     Dates: start: 201704

REACTIONS (3)
  - Cold sweat [Recovered/Resolved]
  - Product storage error [Unknown]
  - Dizziness [Recovered/Resolved]

NARRATIVE: CASE EVENT DATE: 20170623
